FAERS Safety Report 13992129 (Version 2)
Quarter: 2017Q4

REPORT INFORMATION
  Report Type: Spontaneous
  Country: US (occurrence: US)
  Receive Date: 20170920
  Receipt Date: 20171123
  Transmission Date: 20180321
  Serious: No
  Sender: FDA-Public Use
  Company Number: US-JNJFOC-20170815166

PATIENT
  Age: 60 Year
  Sex: Female
  Weight: 68.49 kg

DRUGS (6)
  1. ASPIRIN. [Concomitant]
     Active Substance: ASPIRIN
     Route: 065
  2. RISPERDAL CONSTA [Suspect]
     Active Substance: RISPERIDONE
     Indication: SCHIZOPHRENIA
     Dosage: STARTED ABOUT 3 YEARS AGO
     Route: 030
  3. COBALAMIN [Concomitant]
     Active Substance: COBALAMIN
     Indication: NUTRITIONAL SUPPLEMENTATION
     Route: 050
  4. PRAVASTATIN. [Concomitant]
     Active Substance: PRAVASTATIN
     Indication: BLOOD CHOLESTEROL ABNORMAL
     Route: 065
  5. VITAMIN D [Concomitant]
     Active Substance: CHOLECALCIFEROL
     Indication: NUTRITIONAL SUPPLEMENTATION
     Route: 065
  6. LORAZEPAM. [Concomitant]
     Active Substance: LORAZEPAM
     Route: 065

REACTIONS (3)
  - Product reconstitution quality issue [Unknown]
  - Underdose [Unknown]
  - Device occlusion [Unknown]

NARRATIVE: CASE EVENT DATE: 20170816
